FAERS Safety Report 9401050 (Version 2)
Quarter: 2013Q3

REPORT INFORMATION
  Report Type: Spontaneous
  Country: US (occurrence: US)
  Receive Date: 20130715
  Receipt Date: 20130821
  Transmission Date: 20140515
  Serious: Yes (Other)
  Sender: FDA-Public Use
  Company Number: US-PFIZER INC-2013204305

PATIENT
  Age: 40 Year
  Sex: Female
  Weight: 73.9 kg

DRUGS (2)
  1. LYRICA [Suspect]
     Indication: FIBROMYALGIA
     Dosage: 150 MG, 2X/DAY
     Route: 048
     Dates: end: 201307
  2. ABILIFY [Suspect]
     Dosage: UNK

REACTIONS (5)
  - Weight increased [Recovering/Resolving]
  - Hunger [Recovered/Resolved]
  - Increased appetite [Unknown]
  - Laboratory test abnormal [Unknown]
  - Drug ineffective [Unknown]
